FAERS Safety Report 11428714 (Version 1)
Quarter: 2015Q3

REPORT INFORMATION
  Report Type: Spontaneous
  Country: US (occurrence: None)
  Receive Date: 20150827
  Receipt Date: 20150827
  Transmission Date: 20151125
  Serious: Yes (Other)
  Sender: FDA-Public Use
  Company Number: None

PATIENT
  Age: 48 Year
  Sex: Female
  Weight: 73.94 kg

DRUGS (1)
  1. TRAMADOL 50 MG ULTRAM [Suspect]
     Active Substance: TRAMADOL
     Indication: ARTHRALGIA
     Route: 048
     Dates: start: 20150803, end: 20150803

REACTIONS (18)
  - Altered state of consciousness [None]
  - Middle insomnia [None]
  - Nausea [None]
  - Dyspnoea [None]
  - Vomiting [None]
  - Headache [None]
  - Balance disorder [None]
  - Photophobia [None]
  - Tinnitus [None]
  - Hyperhidrosis [None]
  - Abdominal pain upper [None]
  - Asthenia [None]
  - Pain in extremity [None]
  - Ear pain [None]
  - Fatigue [None]
  - Heart rate increased [None]
  - Feeling hot [None]
  - Hypophagia [None]

NARRATIVE: CASE EVENT DATE: 20150803
